FAERS Safety Report 10712402 (Version 2)
Quarter: 2015Q1

REPORT INFORMATION
  Report Type: Spontaneous
  Country: MY (occurrence: MY)
  Receive Date: 20150115
  Receipt Date: 20150210
  Transmission Date: 20150721
  Serious: Yes (Hospitalization, Other)
  Sender: FDA-Public Use
  Company Number: MY-BRISTOL-MYERS SQUIBB COMPANY-BMS-2015-001355

PATIENT
  Age: 71 Year
  Sex: Male
  Weight: 55 kg

DRUGS (3)
  1. CARBOPLATIN. [Suspect]
     Active Substance: CARBOPLATIN
     Indication: SQUAMOUS CELL CARCINOMA OF THE HYPOPHARYNX
     Dosage: UNK
     Route: 042
     Dates: start: 20141217
  2. PACLITAXEL. [Suspect]
     Active Substance: PACLITAXEL
     Indication: SQUAMOUS CELL CARCINOMA OF THE HYPOPHARYNX
     Dosage: UNK UNK, QWK
     Route: 042
     Dates: start: 20141217
  3. ERBITUX [Suspect]
     Active Substance: CETUXIMAB
     Indication: SQUAMOUS CELL CARCINOMA OF THE HYPOPHARYNX
     Dosage: UNK, QWK
     Route: 042
     Dates: start: 20141217

REACTIONS (5)
  - Immunosuppression [Unknown]
  - Febrile neutropenia [Recovered/Resolved]
  - Pneumonia [Recovered/Resolved]
  - Drug interaction [Unknown]
  - Infection [Unknown]

NARRATIVE: CASE EVENT DATE: 20141230
